FAERS Safety Report 4700790-4 (Version None)
Quarter: 2005Q2

REPORT INFORMATION
  Report Type: 
  Country: None (occurrence: None)
  Receive Date: 20050624
  Receipt Date: 20050422
  Transmission Date: 20051028
  Serious: Yes (Other)
  Sender: FDA-Public Use
  Company Number: 402878

PATIENT
  Age: 50 Year
  Sex: Female

DRUGS (5)
  1. CAPECITABINE (CAPECITABINE) [Suspect]
     Indication: ADENOCARCINOMA PANCREAS
     Dosage: 1250 MG/M2 2 PER DAY ORAL
     Route: 048
  2. TRIAMTERENE [Concomitant]
  3. VIOKASE (PANCREATIN) [Concomitant]
  4. REGLAN [Concomitant]
  5. ZANTAC [Concomitant]

REACTIONS (1)
  - NEUROPATHY PERIPHERAL [None]
